FAERS Safety Report 13370393 (Version 1)
Quarter: 2017Q1

REPORT INFORMATION
  Report Type: Spontaneous
  Country: US (occurrence: US)
  Receive Date: 20170324
  Receipt Date: 20170324
  Transmission Date: 20170429
  Serious: No
  Sender: FDA-Public Use
  Company Number: US-ROCHE-1248083

PATIENT
  Sex: Female

DRUGS (1)
  1. XOLAIR [Suspect]
     Active Substance: OMALIZUMAB
     Indication: ASTHMA
     Route: 058

REACTIONS (7)
  - Pain in extremity [Unknown]
  - Peripheral swelling [Recovering/Resolving]
  - Asthma [Unknown]
  - Skin discolouration [Unknown]
  - Burning sensation [Unknown]
  - Peripheral swelling [Recovered/Resolved]
  - Peripheral swelling [Unknown]
